FAERS Safety Report 7582159-0 (Version None)
Quarter: 2011Q2

REPORT INFORMATION
  Report Type: 
  Country: None (occurrence: None)
  Receive Date: 20110630
  Receipt Date: 20091217
  Transmission Date: 20111010
  Serious: No
  Sender: FDA-Public Use
  Company Number: 2009BI041559

PATIENT
  Sex: Female

DRUGS (3)
  1. TYSABRI [Suspect]
  2. TYSABRI [Suspect]
     Indication: MULTIPLE SCLEROSIS
     Route: 042
     Dates: start: 20090923
  3. AMPYRA [Concomitant]
     Dates: start: 20110201

REACTIONS (7)
  - THROMBOCYTOSIS [None]
  - URINARY TRACT INFECTION [None]
  - ALLERGY TO ANIMAL [None]
  - SINUSITIS [None]
  - WHITE BLOOD CELL COUNT INCREASED [None]
  - BACK PAIN [None]
  - UPPER RESPIRATORY TRACT INFECTION [None]
